FAERS Safety Report 5618712-0 (Version None)
Quarter: 2008Q1

REPORT INFORMATION
  Report Type: 
  Country: None (occurrence: None)
  Receive Date: 20080207
  Receipt Date: 20080131
  Transmission Date: 20080703
  Serious: Yes (Other)
  Sender: FDA-Public Use
  Company Number: US-BAYER-200712317BWH

PATIENT
  Age: 73 Year
  Sex: Male

DRUGS (12)
  1. NEXAVAR [Suspect]
     Indication: RENAL CELL CARCINOMA
     Dosage: TOTAL DAILY DOSE: 800 MG  UNIT DOSE: 200 MG
     Route: 048
     Dates: start: 20060101
  2. FUROSEMIDE [Concomitant]
     Dosage: AS USED: 120-40 MG  UNIT DOSE: 40 MG
  3. SPIRONOLACTONE [Concomitant]
     Dosage: TOTAL DAILY DOSE: 25 MG
  4. METOPROLOL TARTRATE [Concomitant]
     Dosage: TOTAL DAILY DOSE: 100 MG
  5. Q-BID LA [Concomitant]
     Dosage: TOTAL DAILY DOSE: 2000 MG  UNIT DOSE: 1000 MG
     Route: 048
  6. LEVOXYL [Concomitant]
     Dosage: TOTAL DAILY DOSE: 0.088 MG
  7. LANOXIN [Concomitant]
     Dosage: TOTAL DAILY DOSE: 0.25 MG
  8. FLOMAX [Concomitant]
     Dosage: TOTAL DAILY DOSE: 0.4 MG
  9. GLIPERIDE [Concomitant]
     Dosage: TOTAL DAILY DOSE: 16 MG
  10. ROSIGLITAZONE MALEATE [Concomitant]
     Dosage: TOTAL DAILY DOSE: 4 MG  UNIT DOSE: 8 MG
  11. COUMADIN [Concomitant]
  12. SIMVASTATIN [Concomitant]
     Dosage: AS USED: 40 MG  UNIT DOSE: 80 MG

REACTIONS (2)
  - BREAST MASS [None]
  - SKIN CANCER [None]
